FAERS Safety Report 14988982 (Version 1)
Quarter: 2018Q2

REPORT INFORMATION
  Report Type: Spontaneous
  Country: IN (occurrence: IN)
  Receive Date: 20180608
  Receipt Date: 20180608
  Transmission Date: 20180711
  Serious: Yes (Death, Hospitalization)
  Sender: FDA-Public Use
  Company Number: IN-MYLANLABS-2018M1038327

PATIENT
  Age: 25 Year
  Sex: Male
  Weight: 45 kg

DRUGS (11)
  1. LEVOFLOXACIN. [Suspect]
     Active Substance: LEVOFLOXACIN
     Dosage: ON DAY 2
     Route: 065
  2. ISONIAZID. [Suspect]
     Active Substance: ISONIAZID
     Indication: TUBERCULOSIS
     Route: 065
  3. ETHAMBUTOL [Suspect]
     Active Substance: ETHAMBUTOL HYDROCHLORIDE
     Indication: TUBERCULOSIS
     Route: 065
  4. TOLPERISONE [Concomitant]
     Active Substance: TOLPERISONE
     Indication: PAIN
     Route: 065
  5. RIFAMPICIN [Suspect]
     Active Substance: RIFAMPIN
     Indication: TUBERCULOSIS
     Route: 065
  6. RABEPRAZOLE [Concomitant]
     Active Substance: RABEPRAZOLE
     Indication: PAIN
     Route: 065
  7. STREPTOMYCIN [Concomitant]
     Active Substance: STREPTOMYCIN\STREPTOMYCIN SULFATE
     Dosage: ON DAY 6
     Route: 065
  8. LEVOFLOXACIN. [Suspect]
     Active Substance: LEVOFLOXACIN
     Indication: TUBERCULOSIS
     Dosage: ON DAY1
     Route: 065
  9. STREPTOMYCIN [Concomitant]
     Active Substance: STREPTOMYCIN\STREPTOMYCIN SULFATE
     Indication: TUBERCULOSIS
     Dosage: ON DAY5
     Route: 065
  10. PYRAZINAMIDE. [Suspect]
     Active Substance: PYRAZINAMIDE
     Indication: TUBERCULOSIS
     Route: 065
  11. ASERA P [Concomitant]
     Active Substance: ACECLOFENAC\ACETAMINOPHEN
     Indication: PAIN
     Route: 065

REACTIONS (5)
  - Toxic epidermal necrolysis [Fatal]
  - Drug eruption [Not Recovered/Not Resolved]
  - Cardio-respiratory arrest [Fatal]
  - Angular cheilitis [Unknown]
  - Hepatotoxicity [Unknown]
